FAERS Safety Report 10365140 (Version 1)
Quarter: 2014Q3

REPORT INFORMATION
  Report Type: Spontaneous
  Country: US (occurrence: None)
  Receive Date: 20140805
  Receipt Date: 20140805
  Transmission Date: 20150326
  Serious: Yes (Other)
  Sender: FDA-Public Use
  Company Number: None

PATIENT
  Age: 23 Year
  Sex: Female
  Weight: 82.1 kg

DRUGS (1)
  1. XULANE [Suspect]
     Active Substance: ETHINYL ESTRADIOL\NORELGESTROMIN
     Indication: CONTRACEPTION
     Dosage: 1 PTACH WEEKLY FFOR 3 WEEKS
     Route: 062
     Dates: start: 20140720, end: 20140804

REACTIONS (5)
  - Pain [None]
  - Fatigue [None]
  - Emotional disorder [None]
  - Depression [None]
  - Product substitution issue [None]

NARRATIVE: CASE EVENT DATE: 20140804
